FAERS Safety Report 21149667 (Version 5)
Quarter: 2023Q4

REPORT INFORMATION
  Report Type: Spontaneous
  Country: US (occurrence: US)
  Receive Date: 20220729
  Receipt Date: 20231218
  Transmission Date: 20240110
  Serious: No
  Sender: FDA-Public Use
  Company Number: US-PFIZER INC-202200552753

PATIENT
  Age: 65 Year
  Sex: Female

DRUGS (1)
  1. XELJANZ XR [Suspect]
     Active Substance: TOFACITINIB CITRATE
     Indication: Fibromyalgia
     Dosage: 11 MG, DAILY
     Route: 048

REACTIONS (8)
  - Frustration tolerance decreased [Unknown]
  - Confusional state [Unknown]
  - Stress [Unknown]
  - Urinary tract infection [Unknown]
  - Infection [Unknown]
  - Malaise [Unknown]
  - Depressed mood [Unknown]
  - Off label use [Unknown]
